FAERS Safety Report 21533553 (Version 1)
Quarter: 2022Q4

REPORT INFORMATION
  Report Type: Spontaneous
  Country: CA (occurrence: CA)
  Receive Date: 20221101
  Receipt Date: 20221101
  Transmission Date: 20230113
  Serious: Yes (Death, Hospitalization)
  Sender: FDA-Public Use
  Company Number: CA-MACLEODS PHARMACEUTICALS US LTD-MAC2022038065

PATIENT

DRUGS (2)
  1. ENTACAPONE [Suspect]
     Active Substance: ENTACAPONE
     Indication: Parkinson^s disease
     Dosage: UNK
     Route: 065
  2. ENTACAPONE [Suspect]
     Active Substance: ENTACAPONE
     Dosage: 1 DOSAGE FORM (1 DOSE)
     Route: 065

REACTIONS (3)
  - Fall [Fatal]
  - Hypersensitivity [Recovered/Resolved]
  - Colitis microscopic [Recovered/Resolved]
